FAERS Safety Report 23129894 (Version 3)
Quarter: 2023Q4

REPORT INFORMATION
  Report Type: Spontaneous
  Country: KR (occurrence: KR)
  Receive Date: 20231031
  Receipt Date: 20231113
  Transmission Date: 20240109
  Serious: Yes (Other)
  Sender: FDA-Public Use
  Company Number: KR-009507513-2310KOR012007

PATIENT
  Age: 72 Year
  Sex: Male

DRUGS (4)
  1. KEYTRUDA [Suspect]
     Active Substance: PEMBROLIZUMAB
     Indication: Non-small cell lung cancer stage IV
     Dosage: UNK
     Dates: start: 202006, end: 2021
  2. KEYTRUDA [Suspect]
     Active Substance: PEMBROLIZUMAB
     Dosage: UNK
     Dates: start: 202111, end: 202205
  3. PEMETREXED [Suspect]
     Active Substance: PEMETREXED
     Indication: Non-small cell lung cancer stage IV
     Dosage: UNK
     Dates: start: 202006
  4. CARBOPLATIN [Suspect]
     Active Substance: CARBOPLATIN
     Indication: Non-small cell lung cancer stage IV
     Dosage: UNK
     Dates: start: 202006

REACTIONS (1)
  - Pulmonary toxicity [Unknown]

NARRATIVE: CASE EVENT DATE: 20210910
